FAERS Safety Report 17745416 (Version 1)
Quarter: 2020Q2

REPORT INFORMATION
  Report Type: Spontaneous
  Country: DE (occurrence: DE)
  Receive Date: 20200504
  Receipt Date: 20200504
  Transmission Date: 20200714
  Serious: Yes (Other)
  Sender: FDA-Public Use
  Company Number: DE-ASTRAZENECA-2020SE58495

PATIENT
  Age: 26 Year
  Sex: Male

DRUGS (2)
  1. POTABA [Suspect]
     Active Substance: AMINOBENZOATE POTASSIUM
     Indication: PEYRONIE^S DISEASE
     Route: 048
  2. ROSUVASTATIN. [Suspect]
     Active Substance: ROSUVASTATIN
     Dosage: UNKNOWN
     Route: 048

REACTIONS (3)
  - Leukopenia [Not Recovered/Not Resolved]
  - Underdose [Recovered/Resolved]
  - Abdominal discomfort [Not Recovered/Not Resolved]
